FAERS Safety Report 7179705-8 (Version None)
Quarter: 2010Q4

REPORT INFORMATION
  Report Type: 
  Country: None (occurrence: None)
  Receive Date: 20101221
  Receipt Date: 20101216
  Transmission Date: 20110411
  Serious: Yes (Hospitalization)
  Sender: FDA-Public Use
  Company Number: SE-ROCHE-742982

PATIENT
  Age: 45 Year
  Sex: Female

DRUGS (5)
  1. HERCEPTIN [Suspect]
     Indication: BREAST CANCER
     Dosage: FORM: HERCEPTIN POWDER F SOL F INF 150 MG. DOSE: 336MG4MG4. FREQUENCY: UNKNOWN.
     Route: 042
     Dates: start: 20100831, end: 20101103
  2. FLUOROURACIL [Concomitant]
  3. EPIRUBICIN [Concomitant]
  4. CYCLOPHOSPHAMIDE [Concomitant]
  5. DOCETAXEL [Concomitant]
     Dosage: FREQUENCY: THREE TIMES

REACTIONS (1)
  - PERICARDITIS [None]
